FAERS Safety Report 17940363 (Version 3)
Quarter: 2020Q3

REPORT INFORMATION
  Report Type: Spontaneous
  Country: US (occurrence: US)
  Receive Date: 20200625
  Receipt Date: 20200921
  Transmission Date: 20201103
  Serious: Yes (Life-Threatening, Other)
  Sender: FDA-Public Use
  Company Number: US-SA-2020SA158442

PATIENT

DRUGS (2)
  1. LANTUS SOLOSTAR [Suspect]
     Active Substance: INSULIN GLARGINE
     Indication: TYPE 1 DIABETES MELLITUS
     Dosage: 40 IU, IN THE EVENING
     Route: 065
  2. LANTUS SOLOSTAR [Suspect]
     Active Substance: INSULIN GLARGINE
     Indication: DIABETES MELLITUS MANAGEMENT
     Dosage: 32 IU, IN THE MORNING
     Route: 065
     Dates: start: 20200524, end: 20200524

REACTIONS (5)
  - Blood glucose decreased [Recovered/Resolved]
  - Hypoglycaemia [Unknown]
  - Fall [Unknown]
  - Loss of consciousness [Unknown]
  - Device operational issue [Recovered/Resolved]

NARRATIVE: CASE EVENT DATE: 20200524
